FAERS Safety Report 6587709-9 (Version None)
Quarter: 2010Q1

REPORT INFORMATION
  Report Type: 
  Country: None (occurrence: None)
  Receive Date: 20100218
  Receipt Date: 20091102
  Transmission Date: 20100710
  Serious: No
  Sender: FDA-Public Use
  Company Number: A0814379A

PATIENT
  Age: 62 Year
  Sex: Male

DRUGS (5)
  1. COREG CR [Suspect]
     Indication: HYPERTENSION
     Dosage: 40MG PER DAY
     Route: 048
     Dates: start: 20091030
  2. DIOVAN [Concomitant]
  3. TEKTURNA [Concomitant]
  4. DIURETIC [Concomitant]
  5. POTASSIUM [Concomitant]

REACTIONS (1)
  - DRUG INEFFECTIVE [None]
